FAERS Safety Report 14057267 (Version 1)
Quarter: 2017Q4

REPORT INFORMATION
  Report Type: Spontaneous
  Country: FR (occurrence: FR)
  Receive Date: 20171006
  Receipt Date: 20171006
  Transmission Date: 20180321
  Serious: Yes (Other)
  Sender: FDA-Public Use
  Company Number: FR-MERCK KGAA-2029077

PATIENT
  Age: 46 Year
  Sex: Female

DRUGS (1)
  1. NOVOTHYROX [Suspect]
     Active Substance: LEVOTHYROXINE SODIUM
     Indication: THYROID MASS
     Dates: start: 20170414, end: 20170821

REACTIONS (8)
  - Fatigue [None]
  - Gait disturbance [None]
  - Insomnia [None]
  - Pain in extremity [Recovering/Resolving]
  - Pigmentation disorder [None]
  - Palpitations [None]
  - Blindness transient [None]
  - Skin discolouration [None]

NARRATIVE: CASE EVENT DATE: 2017
